FAERS Safety Report 5475559-6 (Version None)
Quarter: 2007Q4

REPORT INFORMATION
  Report Type: 
  Country: None (occurrence: None)
  Receive Date: 20071003
  Receipt Date: 20061120
  Transmission Date: 20080405
  Serious: No
  Sender: FDA-Public Use
  Company Number: US-KINGPHARMUSA00001-K200601499

PATIENT

DRUGS (6)
  1. SONATA [Suspect]
     Indication: INSOMNIA
     Route: 048
     Dates: start: 20060101
  2. CELEXA [Concomitant]
  3. XANAX [Concomitant]
  4. SYNTHROID [Concomitant]
  5. PROTONIX                           /01263201/ [Concomitant]
  6. PREMARIN [Concomitant]

REACTIONS (1)
  - DRUG INEFFECTIVE [None]
